FAERS Safety Report 17274430 (Version 1)
Quarter: 2020Q1

REPORT INFORMATION
  Report Type: Spontaneous
  Country: US (occurrence: US)
  Receive Date: 20200115
  Receipt Date: 20200115
  Transmission Date: 20200409
  Serious: No
  Sender: FDA-Public Use
  Company Number: US-009507513-2001USA002303

PATIENT
  Sex: Female

DRUGS (1)
  1. NEXPLANON [Suspect]
     Active Substance: ETONOGESTREL
     Dosage: 1 ROD, EVERY 2 YEARS
     Route: 059
     Dates: start: 201910

REACTIONS (3)
  - Device expulsion [Not Recovered/Not Resolved]
  - Pruritus [Unknown]
  - Device deployment issue [Not Recovered/Not Resolved]
